FAERS Safety Report 13549766 (Version 2)
Quarter: 2017Q2

REPORT INFORMATION
  Report Type: Spontaneous
  Country: NL (occurrence: NL)
  Receive Date: 20170516
  Receipt Date: 20170628
  Transmission Date: 20170830
  Serious: Yes (Death, Life-Threatening, Other)
  Sender: FDA-Public Use
  Company Number: NL-PFIZER INC-2017205941

PATIENT
  Age: 57 Year
  Sex: Male

DRUGS (2)
  1. CLINDAMYCIN PHOSPHATE. [Suspect]
     Active Substance: CLINDAMYCIN PHOSPHATE
     Indication: STREPTOCOCCAL INFECTION
     Dosage: UNK
  2. PENICILLIN G [Suspect]
     Active Substance: PENICILLIN G
     Indication: STREPTOCOCCAL INFECTION
     Dosage: UNK

REACTIONS (3)
  - Multiple organ dysfunction syndrome [Fatal]
  - Drug ineffective [Fatal]
  - Septic shock [Fatal]
